FAERS Safety Report 25977329 (Version 1)
Quarter: 2025Q4

REPORT INFORMATION
  Report Type: Spontaneous
  Country: RU (occurrence: RU)
  Receive Date: 20251030
  Receipt Date: 20251030
  Transmission Date: 20260118
  Serious: Yes (Hospitalization, Other)
  Sender: ALEXION PHARMACEUTICALS
  Company Number: RU-ASTRAZENECA-202510EAF024588RU

PATIENT
  Age: 4 Year
  Sex: Female
  Weight: 18 kg

DRUGS (7)
  1. PULMICORT TURBUHALER [Suspect]
     Active Substance: BUDESONIDE
     Indication: Respiratory tract infection
     Dosage: 0.25 MILLIGRAM PER MILLILITRE, BID
     Route: 065
  2. PULMICORT TURBUHALER [Suspect]
     Active Substance: BUDESONIDE
     Indication: Bronchial obstruction
     Dosage: UNK
     Route: 065
  3. PULMICORT TURBUHALER [Suspect]
     Active Substance: BUDESONIDE
     Indication: Pneumonia
  4. ISOPRINOSINE [Concomitant]
     Active Substance: INOSINE PRANOBEX
     Route: 065
  5. AZITHROMYCIN [Concomitant]
     Active Substance: AZITHROMYCIN
     Route: 065
  6. Angidak [Concomitant]
     Route: 065
  7. AMBROXOL [Concomitant]
     Active Substance: AMBROXOL
     Route: 065

REACTIONS (3)
  - Dyspnoea [Recovered/Resolved]
  - Body temperature increased [Recovered/Resolved]
  - Off label use [Recovered/Resolved]
